FAERS Safety Report 4353633-5 (Version None)
Quarter: 2004Q2

REPORT INFORMATION
  Report Type: 
  Country: None (occurrence: None)
  Receive Date: 20040430
  Receipt Date: 20040420
  Transmission Date: 20050107
  Serious: Yes (Hospitalization)
  Sender: FDA-Public Use
  Company Number: 2002064685

PATIENT
  Age: 63 Year
  Sex: Female

DRUGS (2)
  1. ATORVASTATIN (ATORVASTATIN) [Suspect]
     Indication: DYSLIPIDAEMIA
     Dosage: 10 MG (DAILY), ORAL
     Route: 048
     Dates: start: 20000320
  2. ACETYLSALICYLIC ACID SRT [Concomitant]

REACTIONS (3)
  - ABDOMINAL WALL CYST [None]
  - INCISION SITE COMPLICATION [None]
  - PELVIC MASS [None]
